FAERS Safety Report 10617154 (Version 3)
Quarter: 2014Q4

REPORT INFORMATION
  Report Type: Report from Study
  Country: CN (occurrence: CN)
  Receive Date: 20141201
  Receipt Date: 20141222
  Transmission Date: 20150529
  Serious: Yes (Hospitalization)
  Sender: FDA-Public Use
  Company Number: CN-ASTELLAS-2014US018402

PATIENT
  Sex: Male

DRUGS (1)
  1. ERLOTINIB [Suspect]
     Active Substance: ERLOTINIB
     Indication: NON-SMALL CELL LUNG CANCER
     Route: 048
     Dates: start: 20101130

REACTIONS (6)
  - Paralysis [Unknown]
  - Rash [Unknown]
  - Ill-defined disorder [Unknown]
  - Scab [Unknown]
  - Rash erythematous [Unknown]
  - Acne [Unknown]
